FAERS Safety Report 7677495-3 (Version None)
Quarter: 2011Q3

REPORT INFORMATION
  Report Type: 
  Country: None (occurrence: None)
  Receive Date: 20110811
  Receipt Date: 20110804
  Transmission Date: 20111222
  Serious: Yes (Other)
  Sender: FDA-Public Use
  Company Number: ES-JNJFOC-20110705998

PATIENT
  Sex: Male

DRUGS (4)
  1. ABIRATERONE ACETATE [Suspect]
     Dosage: INITIATED APPROXIMATELY IN FEB OR MAR-2011
     Route: 048
     Dates: start: 20110101, end: 20110512
  2. ABIRATERONE ACETATE [Suspect]
     Indication: PROSTATE CANCER METASTATIC
     Dosage: INITIATED APPROXIMATELY IN FEB OR MAR-2011
     Route: 048
     Dates: start: 20110101, end: 20110512
  3. ABIRATERONE ACETATE [Suspect]
     Route: 048
     Dates: start: 20110513
  4. ABIRATERONE ACETATE [Suspect]
     Route: 048
     Dates: start: 20110513

REACTIONS (1)
  - DEMENTIA ALZHEIMER'S TYPE [None]
